FAERS Safety Report 6247676-4 (Version None)
Quarter: 2009Q2

REPORT INFORMATION
  Report Type: 
  Country: None (occurrence: None)
  Receive Date: 20090626
  Receipt Date: 20090616
  Transmission Date: 20091009
  Serious: Yes (Life-Threatening, Hospitalization, Disabling, Other)
  Sender: FDA-Public Use
  Company Number: FR-ELI_LILLY_AND_COMPANY-FR200904004120

PATIENT
  Age: 51 Year
  Sex: Female
  Weight: 65 kg

DRUGS (6)
  1. CYMBALTA [Suspect]
     Indication: DEPRESSION
     Dosage: 60 MG, DAILY (1/D)
     Route: 048
     Dates: start: 20090209, end: 20090302
  2. LAROXYL [Interacting]
     Indication: DEPRESSION
     Dosage: 30 MG DAILY (1/D) PUS 10 DROPS DURING THE DAY
     Route: 048
     Dates: start: 20020101, end: 20090302
  3. LAROXYL [Interacting]
     Dosage: 30 MG, DAILY (1/D)
  4. DITROPAN [Concomitant]
     Dosage: 5 MG, 3/D
     Route: 048
  5. LIORESAL [Concomitant]
     Dosage: 1 D/F, 4/D
     Route: 048
  6. FRACTAL [Concomitant]
     Dosage: 80 MG, DAILY (1/D)
     Route: 048

REACTIONS (6)
  - CHEST PAIN [None]
  - DRUG INTERACTION [None]
  - ELECTROCARDIOGRAM QT PROLONGED [None]
  - VENTRICULAR FIBRILLATION [None]
  - VENTRICULAR HYPOKINESIA [None]
  - VENTRICULAR TACHYCARDIA [None]
